FAERS Safety Report 9803924 (Version 2)
Quarter: 2014Q1

REPORT INFORMATION
  Report Type: Spontaneous
  Country: GB (occurrence: GB)
  Receive Date: 20140108
  Receipt Date: 20140212
  Transmission Date: 20141002
  Serious: Yes (Other)
  Sender: FDA-Public Use
  Company Number: GB-PFIZER INC-2014003945

PATIENT
  Age: 4 Decade
  Sex: Female

DRUGS (4)
  1. LYRICA [Suspect]
     Indication: DEPRESSION
     Dosage: 150 MG, 2X/DAY
  2. LYRICA [Suspect]
     Dosage: 1050 MG, DAILY
  3. DULOXETINE [Concomitant]
     Dosage: 60 MG, UNK
  4. CERAZETTE [Concomitant]
     Dosage: 75 UG, UNK

REACTIONS (3)
  - Off label use [Unknown]
  - Overdose [Unknown]
  - Drug abuse [Unknown]
